FAERS Safety Report 4813665-7 (Version None)
Quarter: 2005Q4

REPORT INFORMATION
  Report Type: 
  Country: None (occurrence: None)
  Receive Date: 20051028
  Receipt Date: 20050307
  Transmission Date: 20060501
  Serious: No
  Sender: FDA-Public Use
  Company Number: US-GLAXOSMITHKLINE-A0548590A

PATIENT
  Age: 65 Year
  Sex: Male

DRUGS (7)
  1. ADVAIR DISKUS 100/50 [Suspect]
     Indication: DRUG USE FOR UNKNOWN INDICATION
     Route: 055
     Dates: start: 20040101
  2. CLARINEX [Concomitant]
  3. PREVACID [Concomitant]
  4. GLUCOVANCE [Concomitant]
  5. ZESTRIL [Concomitant]
  6. NASACORT AQ [Concomitant]
     Dosage: 2SPR PER DAY
  7. SPIRIVA [Concomitant]

REACTIONS (2)
  - DRUG INEFFECTIVE [None]
  - PHARMACEUTICAL PRODUCT COMPLAINT [None]
